FAERS Safety Report 6601651-6 (Version None)
Quarter: 2010Q1

REPORT INFORMATION
  Report Type: 
  Country: None (occurrence: None)
  Receive Date: 20100225
  Receipt Date: 20100215
  Transmission Date: 20100710
  Serious: Yes (Hospitalization)
  Sender: FDA-Public Use
  Company Number: JP-ROCHE-678900

PATIENT
  Sex: Male
  Weight: 71 kg

DRUGS (8)
  1. AVASTIN [Suspect]
     Indication: LUNG ADENOCARCINOMA
     Dosage: ACTION TAKEN: DISCONTINUED
     Route: 041
     Dates: start: 20091216, end: 20091216
  2. PARAPLATIN [Concomitant]
     Route: 041
     Dates: start: 20091216, end: 20091216
  3. TAXOL [Concomitant]
     Route: 041
     Dates: start: 20091216, end: 20091216
  4. DECADRON [Concomitant]
     Route: 041
     Dates: start: 20091216, end: 20091216
  5. CHLOR-TRIMETON [Concomitant]
     Route: 041
     Dates: start: 20091216, end: 20091216
  6. ZOFRAN [Concomitant]
     Route: 041
     Dates: start: 20091216, end: 20091216
  7. ZANTAC [Concomitant]
     Route: 041
     Dates: start: 20091216, end: 20091216
  8. NOVORAPID [Concomitant]
     Dosage: DOSE: 94 UT, IN FRONT OF BREAKFAST 32 UNIT, IN FRONT OF LUNCH 12 UNIT, IN FRONT OF DINNER 50 UNIT
     Route: 058

REACTIONS (4)
  - PLEURISY [None]
  - PNEUMOTHORAX [None]
  - PYREXIA [None]
  - WHITE BLOOD CELL COUNT DECREASED [None]
